FAERS Safety Report 13265728 (Version 1)
Quarter: 2017Q1

REPORT INFORMATION
  Report Type: Spontaneous
  Country: NL (occurrence: NL)
  Receive Date: 20170223
  Receipt Date: 20170223
  Transmission Date: 20170428
  Serious: Yes (Other)
  Sender: FDA-Public Use
  Company Number: NL-JNJFOC-20170212697

PATIENT

DRUGS (2)
  1. TRABECTEDIN [Suspect]
     Active Substance: TRABECTEDIN
     Indication: SOFT TISSUE SARCOMA
     Dosage: 24-HOUR INFUSION, CYCLE 4
     Route: 042
  2. TRABECTEDIN [Suspect]
     Active Substance: TRABECTEDIN
     Indication: SOFT TISSUE SARCOMA
     Dosage: DOSE: 1.1-1.3 MG/M2, 3-HOUR INFUSION
     Route: 042

REACTIONS (4)
  - Catheter site inflammation [Unknown]
  - Device related thrombosis [Unknown]
  - Catheter site pain [Unknown]
  - Catheter site erythema [Unknown]
